FAERS Safety Report 14955111 (Version 1)
Quarter: 2018Q2

REPORT INFORMATION
  Report Type: Spontaneous
  Country: FR (occurrence: FR)
  Receive Date: 20180531
  Receipt Date: 20180531
  Transmission Date: 20180711
  Serious: Yes (Hospitalization)
  Sender: FDA-Public Use
  Company Number: FR-TEVA-2018-FR-899641

PATIENT
  Age: 19 Year
  Sex: Male
  Weight: 56 kg

DRUGS (4)
  1. SERESTA (OXAZEPAM) [Suspect]
     Active Substance: OXAZEPAM
     Indication: MAJOR DEPRESSION
     Dosage: 5 DOSAGE FORMS DAILY;
     Route: 048
     Dates: start: 20171226
  2. ARIPIPRAZOLE. [Suspect]
     Active Substance: ARIPIPRAZOLE
     Indication: MAJOR DEPRESSION
     Dosage: 5 MILLIGRAM DAILY;
     Route: 048
  3. PAROXETINE. [Suspect]
     Active Substance: PAROXETINE
     Indication: MAJOR DEPRESSION
     Dosage: 30 MILLIGRAM DAILY;
     Route: 048
     Dates: start: 20171227
  4. TERCIAN 25 MG, TABLET COATED SCORED [Suspect]
     Active Substance: CYAMEMAZINE
     Indication: MAJOR DEPRESSION
     Dosage: 2 DOSAGE FORMS DAILY;
     Route: 048
     Dates: start: 20171226

REACTIONS (1)
  - Generalised tonic-clonic seizure [Recovering/Resolving]

NARRATIVE: CASE EVENT DATE: 20180227
